FAERS Safety Report 11029679 (Version 1)
Quarter: 2015Q2

REPORT INFORMATION
  Report Type: Spontaneous
  Country: US (occurrence: None)
  Receive Date: 20150413
  Receipt Date: 20150413
  Transmission Date: 20150821
  Serious: Yes (Hospitalization, Disabling)
  Sender: FDA-Public Use
  Company Number: None

PATIENT
  Age: 33 Year
  Sex: Female
  Weight: 61.69 kg

DRUGS (6)
  1. FLAGYL [Concomitant]
     Active Substance: METRONIDAZOLE\METRONIDAZOLE HYDROCHLORIDE
  2. CLOPIDUGREL [Concomitant]
  3. FLAGYL [Suspect]
     Active Substance: METRONIDAZOLE\METRONIDAZOLE HYDROCHLORIDE
     Indication: INFECTION
     Dosage: 1 PILL EVERY 12 HRS ONCE DAILY TAKEN BY MOUTH
     Route: 048
     Dates: start: 20150402, end: 20150409
  4. AMOXICILLIN. [Concomitant]
     Active Substance: AMOXICILLIN
  5. DALANTIN [Concomitant]
  6. HYDROCO [Concomitant]

REACTIONS (5)
  - Stress [None]
  - Tremor [None]
  - Seizure [None]
  - Fall [None]
  - Head injury [None]

NARRATIVE: CASE EVENT DATE: 20150411
